FAERS Safety Report 24935512 (Version 1)
Quarter: 2025Q1

REPORT INFORMATION
  Report Type: Spontaneous
  Country: CA (occurrence: CA)
  Receive Date: 20250206
  Receipt Date: 20250206
  Transmission Date: 20250409
  Serious: Yes (Other)
  Sender: AUROBINDO
  Company Number: CA-AUROBINDO-AUR-APL-2025-006216

PATIENT

DRUGS (4)
  1. CLINDAMYCIN [Suspect]
     Active Substance: CLINDAMYCIN
     Indication: Tooth injury
     Route: 065
  2. CLINDAMYCIN [Suspect]
     Active Substance: CLINDAMYCIN
     Indication: Road traffic accident
  3. CLINDAMYCIN [Suspect]
     Active Substance: CLINDAMYCIN
     Indication: Pain
  4. CLINDAMYCIN [Suspect]
     Active Substance: CLINDAMYCIN
     Indication: Infection

REACTIONS (9)
  - Abnormal faeces [Unknown]
  - Anal fissure [Unknown]
  - Gait disturbance [Unknown]
  - Haemorrhage [Unknown]
  - Haemorrhoids [Unknown]
  - Hypophagia [Unknown]
  - Impaired healing [Unknown]
  - Impaired quality of life [Unknown]
  - Pain [Unknown]
